FAERS Safety Report 19909144 (Version 2)
Quarter: 2021Q4

REPORT INFORMATION
  Report Type: Spontaneous
  Country: RU (occurrence: RU)
  Receive Date: 20211001
  Receipt Date: 20211020
  Transmission Date: 20220303
  Serious: Yes (Other)
  Sender: FDA-Public Use
  Company Number: RU-JNJFOC-20210942124

PATIENT

DRUGS (1)
  1. IBRUTINIB [Suspect]
     Active Substance: IBRUTINIB
     Indication: Mantle cell lymphoma
     Route: 048
     Dates: start: 20150515, end: 20200915

REACTIONS (22)
  - Rhabdomyolysis [Unknown]
  - Haemorrhagic disorder [Unknown]
  - Pyoderma [Unknown]
  - Tachyarrhythmia [Unknown]
  - Acute kidney injury [Unknown]
  - Atrial fibrillation [Unknown]
  - Tumour lysis syndrome [Unknown]
  - Pneumonia [Unknown]
  - Neutropenia [Unknown]
  - Diarrhoea [Unknown]
  - Therapeutic product effect incomplete [Unknown]
  - Skin disorder [Unknown]
  - Leukocytosis [Unknown]
  - Onychoclasis [Unknown]
  - Sinusitis [Unknown]
  - Herpes virus infection [Unknown]
  - Pruritus [Unknown]
  - Rash erythematous [Unknown]
  - Upper respiratory tract infection [Unknown]
  - Myalgia [Unknown]
  - Muscle spasms [Unknown]
  - Hypertension [Unknown]
